FAERS Safety Report 25227085 (Version 1)
Quarter: 2025Q2

REPORT INFORMATION
  Report Type: Spontaneous
  Country: JP (occurrence: JP)
  Receive Date: 20250422
  Receipt Date: 20250422
  Transmission Date: 20250716
  Serious: Yes (Death, Other)
  Sender: MERCK SHARP & DOHME LLC
  Company Number: JP-009507513-2277529

PATIENT

DRUGS (1)
  1. KEYTRUDA [Suspect]
     Active Substance: PEMBROLIZUMAB
     Indication: Non-small cell lung cancer
     Route: 042

REACTIONS (5)
  - Haemoptysis [Fatal]
  - Pneumothorax [Fatal]
  - Tumour cavitation [Unknown]
  - Therapeutic response increased [Unknown]
  - Incorrect dose administered [Unknown]
